FAERS Safety Report 20035297 (Version 1)
Quarter: 2021Q4

REPORT INFORMATION
  Report Type: Spontaneous
  Country: US (occurrence: US)
  Receive Date: 20211104
  Receipt Date: 20211104
  Transmission Date: 20220304
  Serious: No
  Sender: FDA-Public Use
  Company Number: US-INSUD PHARMA-2110US02517

PATIENT

DRUGS (2)
  1. PROGESTERONE [Suspect]
     Active Substance: PROGESTERONE
     Indication: Hormone replacement therapy
     Dosage: 1 CAPSULE BY MOUTH ONCE NIGHTLY
     Route: 048
     Dates: start: 202109, end: 20211025
  2. GABAPENTIN [Concomitant]
     Active Substance: GABAPENTIN
     Dosage: UNK
     Route: 048

REACTIONS (6)
  - Chest discomfort [Recovered/Resolved]
  - Sleep disorder [Unknown]
  - Insomnia [Unknown]
  - Chest pain [Recovered/Resolved]
  - Product substitution issue [Unknown]
  - Product use in unapproved indication [Unknown]

NARRATIVE: CASE EVENT DATE: 20210101
